FAERS Safety Report 6607574-0 (Version None)
Quarter: 2010Q1

REPORT INFORMATION
  Report Type: 
  Country: None (occurrence: None)
  Receive Date: 20100217
  Receipt Date: 20100201
  Transmission Date: 20100710
  Serious: Yes (Hospitalization)
  Sender: FDA-Public Use
  Company Number: WSDF_00080

PATIENT
  Sex: Female
  Weight: 51.7101 kg

DRUGS (3)
  1. WINRHO SDF [Suspect]
     Indication: IDIOPATHIC THROMBOCYTOPENIC PURPURA
     Dosage: 56 ?G/KG ONCE INTRAVENOUS (NOT OTHERWISE SPECIFIED)
     Route: 042
     Dates: start: 19980617, end: 19980617
  2. TYLENOL-500 [Concomitant]
  3. SOLU-CORTEF [Concomitant]

REACTIONS (4)
  - ABDOMINAL PAIN [None]
  - CHILLS [None]
  - INTRAVASCULAR HAEMOLYSIS [None]
  - PYREXIA [None]
